FAERS Safety Report 11272029 (Version 1)
Quarter: 2015Q3

REPORT INFORMATION
  Report Type: Report from Study
  Country: FR (occurrence: None)
  Receive Date: 20150713
  Receipt Date: 20150713
  Transmission Date: 20151125
  Serious: Yes (Hospitalization)
  Sender: FDA-Public Use
  Company Number: FR-2015-2912

PATIENT
  Age: 7 Year
  Sex: Male
  Weight: 35.2 kg

DRUGS (4)
  1. LEVOTHYOX (LEVOTHYOXINE SODIUM) [Concomitant]
  2. MINIRIN (DESMOPRESSION) [Concomitant]
  3. HYDROCOSTISON (HYDROCORTISONE ACETATE) [Concomitant]
  4. NAVELBINE [Suspect]
     Active Substance: VINORELBINE TARTRATE
     Indication: GLIOMA
     Dosage: 60 MG DAY 1, DAY 8 AND DAY 15 EVERY CYCLES
     Route: 048
     Dates: start: 20150615

REACTIONS (3)
  - Dehydration [None]
  - Vomiting [None]
  - Diarrhoea [None]

NARRATIVE: CASE EVENT DATE: 20150615
